FAERS Safety Report 20446031 (Version 1)
Quarter: 2022Q1

REPORT INFORMATION
  Report Type: Spontaneous
  Country: CN (occurrence: CN)
  Receive Date: 20220208
  Receipt Date: 20220208
  Transmission Date: 20220423
  Serious: Yes (Other)
  Sender: FDA-Public Use
  Company Number: CN-SUNOVION-2022DSP001399

PATIENT
  Age: 15 Year
  Sex: Female

DRUGS (11)
  1. LATUDA [Suspect]
     Active Substance: LURASIDONE HYDROCHLORIDE
     Indication: Schizophrenia
     Dosage: 20MG, ONCE EVERY NIGHT
     Route: 048
     Dates: start: 20210902, end: 20210904
  2. LATUDA [Suspect]
     Active Substance: LURASIDONE HYDROCHLORIDE
     Dosage: 40MG, ONCE EVERY NIGHT
     Route: 048
     Dates: start: 20210905, end: 20210915
  3. LATUDA [Suspect]
     Active Substance: LURASIDONE HYDROCHLORIDE
     Dosage: 80MG, ONCE EVERY NIGHT
     Route: 048
     Dates: start: 20210916, end: 20210922
  4. LATUDA [Suspect]
     Active Substance: LURASIDONE HYDROCHLORIDE
     Dosage: 120MG, ONCE EVERY NIGHT
     Route: 048
     Dates: start: 20210923
  5. ARIPIPRAZOLE [Concomitant]
     Active Substance: ARIPIPRAZOLE
     Indication: Schizophrenia
     Dosage: 15 MG, QD
     Route: 048
     Dates: end: 20210930
  6. OLANZAPINE [Concomitant]
     Active Substance: OLANZAPINE
     Indication: Schizophrenia
     Dosage: 50 MG IN THE MORNING AND 75 MG IN THE EVENING
     Route: 048
     Dates: start: 20210902, end: 20210907
  7. OLANZAPINE [Concomitant]
     Active Substance: OLANZAPINE
     Dosage: 25 MG IN THE MORNING AND 50 MG IN THE EVENING
     Route: 048
     Dates: start: 20210908, end: 20210915
  8. OLANZAPINE [Concomitant]
     Active Substance: OLANZAPINE
     Dosage: 25 MG ONCE A NIGHT
     Route: 048
     Dates: start: 20210916, end: 20210922
  9. OLANZAPINE [Concomitant]
     Active Substance: OLANZAPINE
     Dosage: 5 MG ONCE A NIGHT
     Route: 048
     Dates: start: 20211014, end: 20211027
  10. OLANZAPINE [Concomitant]
     Active Substance: OLANZAPINE
     Dosage: 5 MG, BID
     Route: 048
     Dates: start: 20211028
  11. TRIHEXYPHENIDYL HYDROCHLORIDE [Concomitant]
     Active Substance: TRIHEXYPHENIDYL HYDROCHLORIDE
     Indication: Product used for unknown indication
     Dosage: 2 MG, BID
     Route: 048
     Dates: start: 20210923

REACTIONS (10)
  - Hallucination, auditory [Unknown]
  - Oculogyric crisis [Unknown]
  - Eye pain [Unknown]
  - Mood altered [Unknown]
  - Aggression [Unknown]
  - Akathisia [Not Recovered/Not Resolved]
  - Prescribed underdose [Unknown]
  - Overdose [Unknown]
  - Product administered to patient of inappropriate age [Unknown]
  - Off label use [Unknown]

NARRATIVE: CASE EVENT DATE: 20210902
